FAERS Safety Report 4813113-7 (Version None)
Quarter: 2005Q4

REPORT INFORMATION
  Report Type: 
  Country: None (occurrence: None)
  Receive Date: 20051028
  Receipt Date: 20051017
  Transmission Date: 20060501
  Serious: Yes (Other)
  Sender: FDA-Public Use
  Company Number: 2005GB02019

PATIENT
  Age: 16 Year
  Sex: Male
  Weight: 98 kg

DRUGS (4)
  1. SEROQUEL [Suspect]
     Indication: BIPOLAR DISORDER
     Route: 048
     Dates: start: 20050630
  2. VALPROATE SODIUM [Concomitant]
     Indication: BIPOLAR DISORDER
     Route: 048
     Dates: start: 20050711
  3. DIAZEPAM [Concomitant]
     Indication: BIPOLAR DISORDER
     Dosage: DOSE VARIED
     Route: 048
     Dates: start: 20050501, end: 20050701
  4. CARBAMAZEPINE [Concomitant]
     Indication: BIPOLAR DISORDER
     Route: 048
     Dates: start: 20050630, end: 20050714

REACTIONS (2)
  - THYROID FUNCTION TEST ABNORMAL [None]
  - WEIGHT INCREASED [None]
